FAERS Safety Report 9195368 (Version 1)
Quarter: 2013Q1

REPORT INFORMATION
  Report Type: Spontaneous
  Country: None (occurrence: US)
  Receive Date: 20130328
  Receipt Date: 20130328
  Transmission Date: 20140127
  Serious: No
  Sender: FDA-Public Use
  Company Number: US-ALLERGAN-1214338US

PATIENT
  Sex: Female

DRUGS (2)
  1. LUMIGAN [Suspect]
     Indication: PRODUCT USED FOR UNKNOWN INDICATION
     Route: 047
  2. COMBIGAN[R] [Suspect]
     Indication: PRODUCT USED FOR UNKNOWN INDICATION
     Route: 047

REACTIONS (1)
  - Dry eye [Unknown]
